FAERS Safety Report 18441255 (Version 1)
Quarter: 2020Q4

REPORT INFORMATION
  Report Type: Spontaneous
  Country: US (occurrence: US)
  Receive Date: 20201029
  Receipt Date: 20201029
  Transmission Date: 20210114
  Serious: Yes (Hospitalization)
  Sender: FDA-Public Use
  Company Number: US-MYLANLABS-2020M1090998

PATIENT
  Age: 64 Year
  Sex: Female

DRUGS (1)
  1. IPRATROPIUM/SALBUTAMOL [Suspect]
     Active Substance: ALBUTEROL\IPRATROPIUM BROMIDE
     Indication: CHRONIC OBSTRUCTIVE PULMONARY DISEASE
     Route: 055

REACTIONS (5)
  - Respiratory distress [Unknown]
  - Disease recurrence [Unknown]
  - Hypoxia [Unknown]
  - Stress cardiomyopathy [Unknown]
  - Mental status changes [Unknown]
